FAERS Safety Report 15139343 (Version 1)
Quarter: 2018Q3

REPORT INFORMATION
  Report Type: Spontaneous
  Country: US (occurrence: US)
  Receive Date: 20180713
  Receipt Date: 20180713
  Transmission Date: 20181010
  Serious: No
  Sender: FDA-Public Use
  Company Number: US-PFIZER INC-2018278684

PATIENT
  Age: 9 Year
  Sex: Female

DRUGS (1)
  1. GENOTROPIN [Suspect]
     Active Substance: SOMATROPIN
     Dosage: 1.1 MG, DAILY (PER DAY X 6 DAYS PER WEEK)
     Dates: start: 201404

REACTIONS (4)
  - Anion gap increased [Unknown]
  - Aspartate aminotransferase increased [Unknown]
  - Drug dose omission [Unknown]
  - Alanine aminotransferase increased [Unknown]
